FAERS Safety Report 21186788 (Version 2)
Quarter: 2022Q3

REPORT INFORMATION
  Report Type: Report from Study
  Country: US (occurrence: US)
  Receive Date: 20220808
  Receipt Date: 20220908
  Transmission Date: 20221027
  Serious: Yes (Hospitalization)
  Sender: FDA-Public Use
  Company Number: US-BRISTOL-MYERS SQUIBB COMPANY-2022-083556

PATIENT
  Age: 70 Year
  Sex: Female
  Weight: 69.13 kg

DRUGS (17)
  1. RITUXIMAB [Suspect]
     Active Substance: RITUXIMAB
     Indication: Follicular lymphoma
     Dosage: DAY 1 OF EVERY OTHER CYCLE
     Route: 042
     Dates: start: 20160608, end: 20160705
  2. RITUXIMAB [Suspect]
     Active Substance: RITUXIMAB
     Dosage: DAY 1 OF EVERY OTHER CYCLE??ON 29-AUG-2018 PATIENT RECENT MOST RECENT DOSE
     Route: 042
     Dates: start: 20180801
  3. IBUPROFEN [Concomitant]
     Active Substance: IBUPROFEN
     Indication: Axillary pain
     Dosage: AS NEEDED
     Route: 048
     Dates: start: 2013
  4. IBUPROFEN [Concomitant]
     Active Substance: IBUPROFEN
     Indication: Osteoarthritis
  5. IBUPROFEN [Concomitant]
     Active Substance: IBUPROFEN
     Indication: Arthritis
  6. ASPIRIN [Concomitant]
     Active Substance: ASPIRIN
     Indication: Thrombosis prophylaxis
     Route: 048
     Dates: start: 20200729
  7. ACETAMINOPHEN [Concomitant]
     Active Substance: ACETAMINOPHEN
     Indication: Osteoarthritis
     Dosage: AS NEEDED
     Route: 048
     Dates: start: 20160608
  8. ACETAMINOPHEN [Concomitant]
     Active Substance: ACETAMINOPHEN
     Indication: Premedication
  9. OMEPRAZOLE [Concomitant]
     Active Substance: OMEPRAZOLE
     Indication: Dyspepsia
     Route: 048
     Dates: start: 20160831
  10. OMEPRAZOLE [Concomitant]
     Active Substance: OMEPRAZOLE
     Indication: Cough
  11. OMEPRAZOLE [Concomitant]
     Active Substance: OMEPRAZOLE
     Indication: Nausea
  12. ZYRTEC [Concomitant]
     Active Substance: CETIRIZINE HYDROCHLORIDE
     Indication: Cough
     Route: 048
     Dates: start: 201910
  13. ZYRTEC [Concomitant]
     Active Substance: CETIRIZINE HYDROCHLORIDE
     Indication: Seasonal allergy
  14. VOLTAREN [Concomitant]
     Active Substance: DICLOFENAC SODIUM
     Indication: Inflammation
     Dosage: 1 DF=1 UNIT NOS?QID
     Route: 061
     Dates: start: 20210405
  15. VOLTAREN [Concomitant]
     Active Substance: DICLOFENAC SODIUM
     Indication: Pain
  16. TERBINAFINE [Concomitant]
     Active Substance: TERBINAFINE
     Indication: Infection
     Route: 048
     Dates: start: 20210602
  17. MINERALS\VITAMINS [Concomitant]
     Active Substance: MINERALS\VITAMINS
     Indication: Supplementation therapy
     Dosage: 1 DF = 1 TABLET
     Route: 048
     Dates: start: 20200729

REACTIONS (1)
  - Transient global amnesia [Recovered/Resolved]

NARRATIVE: CASE EVENT DATE: 20220722
